FAERS Safety Report 8255319 (Version 3)
Quarter: 2015Q3

REPORT INFORMATION
  Report Type: Spontaneous
  Country: US (occurrence: US)
  Receive Date: 20111118
  Receipt Date: 20150923
  Transmission Date: 20151125
  Serious: Yes (Death, Hospitalization, Other)
  Sender: FDA-Public Use
  Company Number: PHHY2011US100777

PATIENT
  Age: 50 Year
  Sex: Female

DRUGS (2)
  1. METOPROLOL [Suspect]
     Active Substance: METOPROLOL
     Indication: PRODUCT USED FOR UNKNOWN INDICATION
     Dosage: 25 MG, UNK
     Route: 048
  2. BUPROPION. [Suspect]
     Active Substance: BUPROPION
     Indication: PRODUCT USED FOR UNKNOWN INDICATION
     Dosage: 150 MG, UNK
     Route: 048

REACTIONS (9)
  - Suicide attempt [Fatal]
  - Multi-organ failure [Fatal]
  - Drug interaction [Unknown]
  - Cardiac arrest [Unknown]
  - Bradycardia [Unknown]
  - Seizure [Unknown]
  - Overdose [Unknown]
  - Drug ineffective [Unknown]
  - Hypotension [Unknown]
